FAERS Safety Report 20650215 (Version 1)
Quarter: 2022Q1

REPORT INFORMATION
  Report Type: Spontaneous
  Country: FR (occurrence: FR)
  Receive Date: 20220329
  Receipt Date: 20220329
  Transmission Date: 20220424
  Serious: Yes (Hospitalization)
  Sender: FDA-Public Use
  Company Number: None

PATIENT
  Age: 40 Year
  Sex: Male
  Weight: 58 kg

DRUGS (1)
  1. CIPROFLOXACIN [Suspect]
     Active Substance: CIPROFLOXACIN
     Indication: Orchitis
     Dosage: 1000 MG, QD
     Route: 048
     Dates: start: 20220101, end: 20220105

REACTIONS (3)
  - Granulomatosis with polyangiitis [Not Recovered/Not Resolved]
  - Urticaria [Recovered/Resolved]
  - Tendon disorder [Recovering/Resolving]

NARRATIVE: CASE EVENT DATE: 20220105
